FAERS Safety Report 11839438 (Version 1)
Quarter: 2015Q4

REPORT INFORMATION
  Report Type: Spontaneous
  Country: US (occurrence: None)
  Receive Date: 20151215
  Receipt Date: 20151215
  Transmission Date: 20160305
  Serious: No
  Sender: FDA-Public Use
  Company Number: None

PATIENT
  Age: 52 Year
  Sex: Male

DRUGS (1)
  1. NAPROXEN SODIUM. [Suspect]
     Active Substance: NAPROXEN SODIUM
     Indication: PAIN
     Dates: start: 20141021, end: 20141025

REACTIONS (3)
  - Hydronephrosis [None]
  - Drug-induced liver injury [None]
  - Ureteric dilatation [None]

NARRATIVE: CASE EVENT DATE: 20141026
